FAERS Safety Report 7973818-6 (Version None)
Quarter: 2011Q4

REPORT INFORMATION
  Report Type: 
  Country: None (occurrence: None)
  Receive Date: 20111213
  Receipt Date: 20111201
  Transmission Date: 20120403
  Serious: Yes (Death, Other)
  Sender: FDA-Public Use
  Company Number: CA-ELI_LILLY_AND_COMPANY-CA201010000471

PATIENT
  Sex: Male

DRUGS (8)
  1. ZYPREXA [Suspect]
     Dosage: 25 MG, UNK
  2. RISPERDAL CONSTA [Concomitant]
     Dosage: 37.5 MG, UNKNOWN
     Route: 030
     Dates: start: 20081119
  3. ZYPREXA [Suspect]
     Indication: SCHIZOPHRENIA, PARANOID TYPE
     Dosage: 15 MG, UNKNOWN
     Route: 065
     Dates: start: 19980101
  4. RISPERDAL CONSTA [Concomitant]
     Dosage: 50 MG, UNKNOWN
     Route: 030
     Dates: start: 20090127
  5. ZYPREXA [Suspect]
     Dosage: 5 MG, UNK
  6. ZYPREXA [Suspect]
     Dosage: 20 MG, UNK
  7. KEMADRIN [Concomitant]
     Dosage: 5 MG, UNKNOWN
     Route: 065
  8. FLUANXOL [Concomitant]

REACTIONS (9)
  - PULMONARY OEDEMA [None]
  - PULMONARY EMBOLISM [None]
  - LEFT VENTRICULAR HYPERTROPHY [None]
  - HYPERGLYCAEMIA [None]
  - DELIRIUM [None]
  - OVERDOSE [None]
  - INCREASED APPETITE [None]
  - WEIGHT INCREASED [None]
  - SPEECH DISORDER [None]
